FAERS Safety Report 6469092-2 (Version None)
Quarter: 2009Q4

REPORT INFORMATION
  Report Type: 
  Country: None (occurrence: None)
  Receive Date: 20091203
  Receipt Date: 20070928
  Transmission Date: 20100525
  Serious: Yes (Hospitalization)
  Sender: FDA-Public Use
  Company Number: US-ELI_LILLY_AND_COMPANY-US200707001621

PATIENT
  Age: 91 Year
  Sex: Female

DRUGS (4)
  1. FORTEO [Suspect]
     Indication: FRACTURE
     Dosage: UNK, UNK
     Dates: start: 20060627, end: 20070901
  2. PLAVIX [Concomitant]
  3. ASPIRIN [Concomitant]
  4. LISINOPRIL [Concomitant]

REACTIONS (15)
  - BACK PAIN [None]
  - BONE PAIN [None]
  - CONSTIPATION [None]
  - DIARRHOEA [None]
  - EATING DISORDER [None]
  - EYE SWELLING [None]
  - HEADACHE [None]
  - JOINT SWELLING [None]
  - LOWER EXTREMITY MASS [None]
  - MALAISE [None]
  - NAUSEA [None]
  - PAIN IN EXTREMITY [None]
  - PHOTOPHOBIA [None]
  - RESPIRATORY DISORDER [None]
  - VISUAL IMPAIRMENT [None]
